FAERS Safety Report 14200503 (Version 3)
Quarter: 2018Q1

REPORT INFORMATION
  Report Type: Spontaneous
  Country: US (occurrence: US)
  Receive Date: 20171117
  Receipt Date: 20180312
  Transmission Date: 20180508
  Serious: Yes (Hospitalization, Other)
  Sender: FDA-Public Use
  Company Number: US-BAYER-2017-222107

PATIENT
  Age: 23 Year
  Sex: Female
  Weight: 76.65 kg

DRUGS (2)
  1. MIRENA [Suspect]
     Active Substance: LEVONORGESTREL
  2. MIRENA [Suspect]
     Active Substance: LEVONORGESTREL
     Dosage: 20 MCG/24HR, CONT
     Route: 015
     Dates: start: 201512

REACTIONS (6)
  - Amenorrhoea [None]
  - Drug ineffective [None]
  - Abdominal pain lower [None]
  - Ruptured ectopic pregnancy [None]
  - Haemorrhage in pregnancy [None]
  - Ectopic pregnancy with contraceptive device [None]

NARRATIVE: CASE EVENT DATE: 20171009
